FAERS Safety Report 12889007 (Version 3)
Quarter: 2017Q1

REPORT INFORMATION
  Report Type: Spontaneous
  Country: US (occurrence: US)
  Receive Date: 20161027
  Receipt Date: 20170329
  Transmission Date: 20170428
  Serious: Yes (Other)
  Sender: FDA-Public Use
  Company Number: US-JNJFOC-20161021382

PATIENT
  Age: 60 Year
  Sex: Female
  Weight: 89.81 kg

DRUGS (2)
  1. SIMPONI [Suspect]
     Active Substance: GOLIMUMAB
     Indication: COLITIS ULCERATIVE
     Dosage: TREATMENT STARTED IN 2014 OR 2015
     Route: 058
  2. SIMPONI [Suspect]
     Active Substance: GOLIMUMAB
     Indication: ARTHRITIS
     Dosage: TREATMENT STARTED IN 2014 OR 2015
     Route: 058

REACTIONS (5)
  - Spinal fracture [Unknown]
  - Accidental exposure to product [Recovered/Resolved]
  - Device malfunction [Unknown]
  - Device issue [Unknown]
  - Underdose [Not Recovered/Not Resolved]

NARRATIVE: CASE EVENT DATE: 201605
